FAERS Safety Report 8472507-1 (Version None)
Quarter: 2012Q2

REPORT INFORMATION
  Report Type: 
  Country: None (occurrence: None)
  Receive Date: 20120627
  Receipt Date: 20120125
  Transmission Date: 20120825
  Serious: No
  Sender: FDA-Public Use
  Company Number: US-AMGEN-USASP2011061979

PATIENT
  Age: 90 Year
  Sex: Male

DRUGS (1)
  1. PROCRIT [Suspect]
     Indication: NEPHROPATHY
     Dosage: 40000 UNK, UNK
     Dates: start: 20060101

REACTIONS (1)
  - THERAPEUTIC RESPONSE DECREASED [None]
